FAERS Safety Report 7619186-0 (Version None)
Quarter: 2011Q3

REPORT INFORMATION
  Report Type: 
  Country: None (occurrence: None)
  Receive Date: 20110718
  Receipt Date: 20110706
  Transmission Date: 20111222
  Serious: Yes (Hospitalization, Other)
  Sender: FDA-Public Use
  Company Number: PHEH2009US18000

PATIENT
  Sex: Female

DRUGS (15)
  1. COUMADIN [Concomitant]
  2. TAXOTERE [Concomitant]
  3. AVASTIN [Concomitant]
  4. PROVIGIL [Concomitant]
  5. POTASSIUM [Concomitant]
  6. PROTONIX [Concomitant]
  7. COLACE [Concomitant]
  8. NAVELBINE [Concomitant]
  9. TAMOXIFEN CITRATE [Concomitant]
  10. FASLODEX [Concomitant]
  11. XELODA [Concomitant]
  12. LASIX [Concomitant]
  13. ZOMETA [Suspect]
  14. SYNTHROID [Concomitant]
  15. STOOL SOFTENER [Concomitant]

REACTIONS (12)
  - BACK PAIN [None]
  - OSTEONECROSIS OF JAW [None]
  - CONSTIPATION [None]
  - HAEMOGLOBIN DECREASED [None]
  - RED BLOOD CELL COUNT DECREASED [None]
  - INFECTION [None]
  - METASTASES TO BONE [None]
  - DEFORMITY [None]
  - WHITE BLOOD CELL COUNT DECREASED [None]
  - DYSPNOEA [None]
  - BREAST CANCER METASTATIC [None]
  - PAIN [None]
